FAERS Safety Report 19001102 (Version 1)
Quarter: 2021Q1

REPORT INFORMATION
  Report Type: Other
  Country: CA (occurrence: CA)
  Receive Date: 20210311
  Receipt Date: 20210311
  Transmission Date: 20210420
  Serious: Yes (Hospitalization, Other)
  Sender: FDA-Public Use
  Company Number: CA-CELLTRION INC.-2021CA002838

PATIENT

DRUGS (32)
  1. RITUXIMAB (UNKNOWN) [Suspect]
     Active Substance: RITUXIMAB
     Indication: RHEUMATOID ARTHRITIS
     Dosage: 1000 MILLIGRAM
     Route: 042
  2. OMEPRAZOLE MAGNESIUM. [Suspect]
     Active Substance: OMEPRAZOLE MAGNESIUM
     Indication: PRODUCT USED FOR UNKNOWN INDICATION
     Route: 048
  3. ESTRADIOL. [Concomitant]
     Active Substance: ESTRADIOL
     Indication: MENOPAUSE
     Dosage: 0.5 MILLIGRAM, 1 EVERY 1 DAYS
     Route: 065
  4. PERINDOPRIL [Concomitant]
     Active Substance: PERINDOPRIL
     Indication: CARDIAC DISORDER
  5. SLOW K [Concomitant]
     Active Substance: POTASSIUM CHLORIDE
     Dosage: 600.0 MILLIGRAM
     Route: 065
  6. VAGIFEM [Concomitant]
     Active Substance: ESTRADIOL
     Route: 065
  7. WELLBUTRIN [Concomitant]
     Active Substance: BUPROPION HYDROCHLORIDE
     Route: 065
  8. ZOPICLONE [Concomitant]
     Active Substance: ZOPICLONE
     Route: 065
  9. CROMOGLICIC ACID [Concomitant]
     Active Substance: CROMOLYN
     Indication: HYPERSENSITIVITY
  10. LORAZEPAM. [Concomitant]
     Active Substance: LORAZEPAM
  11. VERAPAMIL [Concomitant]
     Active Substance: VERAPAMIL HYDROCHLORIDE
  12. METHYLPREDNISOLONE. [Concomitant]
     Active Substance: METHYLPREDNISOLONE
     Indication: PREMEDICATION
     Dosage: 100.0 MILLIGRAM
     Route: 042
  13. PAMIDRONATE DISODIUM. [Suspect]
     Active Substance: PAMIDRONATE DISODIUM
     Indication: PRODUCT USED FOR UNKNOWN INDICATION
     Route: 065
  14. PREDNISONE. [Suspect]
     Active Substance: PREDNISONE
     Indication: PRODUCT USED FOR UNKNOWN INDICATION
     Route: 065
  15. CETIRIZINE [Concomitant]
     Active Substance: CETIRIZINE HYDROCHLORIDE
  16. ESOMEPRAZOLE MAGNESIUM TRIHYDRATE [Concomitant]
     Active Substance: ESOMEPRAZOLE MAGNESIUM
  17. SOLU?MEDROL [Concomitant]
     Active Substance: METHYLPREDNISOLONE SODIUM SUCCINATE
     Indication: PREMEDICATION
     Dosage: 100.0 MILLIGRAM
     Route: 042
  18. TYLENOL [Concomitant]
     Active Substance: ACETAMINOPHEN
     Indication: PREMEDICATION
     Dosage: 650.0 MILLIGRAM
     Route: 048
  19. ZOMETA [Concomitant]
     Active Substance: ZOLEDRONIC ACID
  20. RIZATRIPTAN BENZOATE. [Suspect]
     Active Substance: RIZATRIPTAN BENZOATE
     Indication: MIGRAINE
     Route: 065
  21. ATROPINE SULFATE;DIPHENOXYLATE HYDROCHLORIDE [Concomitant]
     Active Substance: ATROPINE SULFATE\DIPHENOXYLATE HYDROCHLORIDE
  22. BUDESONIDE. [Concomitant]
     Active Substance: BUDESONIDE
     Indication: HYPERSENSITIVITY
  23. HYDROMORPH CONTIN [Concomitant]
     Active Substance: HYDROMORPHONE
     Indication: PAIN
     Dosage: 12.0 MILLIGRAM, 3 EVERY 1 DAYS
     Route: 065
  24. OGEN [Concomitant]
     Active Substance: ESTROPIPATE
     Route: 065
  25. BUSCOPAN [Concomitant]
     Active Substance: BUTYLSCOPOLAMINE BROMIDE
  26. CITALOPRAM HYDROBROMIDE. [Concomitant]
     Active Substance: CITALOPRAM HYDROBROMIDE
  27. DIPHENHYDRAMINE;ACETAMINOPHEN;PHENYLPROPANOLAMINE [Concomitant]
     Indication: PREMEDICATION
     Dosage: 50 MG
     Route: 048
  28. DIPHENHYDRAMINE HYDROCHLORIDE. [Concomitant]
     Active Substance: DIPHENHYDRAMINE HYDROCHLORIDE
     Indication: PREMEDICATION
     Dosage: 50 MG
     Route: 048
  29. TOPIRAMATE. [Concomitant]
     Active Substance: TOPIRAMATE
     Indication: MIGRAINE
  30. ACETAMINOPHEN. [Concomitant]
     Active Substance: ACETAMINOPHEN
     Indication: PREMEDICATION
  31. IMODIUM [Concomitant]
     Active Substance: LOPERAMIDE HYDROCHLORIDE
     Route: 065
  32. TRAZODONE [Concomitant]
     Active Substance: TRAZODONE HYDROCHLORIDE

REACTIONS (27)
  - Osteoporosis [Not Recovered/Not Resolved]
  - Anaemia [Not Recovered/Not Resolved]
  - Weight increased [Not Recovered/Not Resolved]
  - Malaise [Not Recovered/Not Resolved]
  - Blood disorder [Not Recovered/Not Resolved]
  - Gastrooesophageal reflux disease [Not Recovered/Not Resolved]
  - Hypotension [Not Recovered/Not Resolved]
  - Immunosuppression [Not Recovered/Not Resolved]
  - Sinusitis [Not Recovered/Not Resolved]
  - Weight decreased [Not Recovered/Not Resolved]
  - Depression [Not Recovered/Not Resolved]
  - Abdominal pain [Not Recovered/Not Resolved]
  - Insomnia [Not Recovered/Not Resolved]
  - Gastric disorder [Not Recovered/Not Resolved]
  - Diarrhoea [Not Recovered/Not Resolved]
  - Hypersensitivity [Not Recovered/Not Resolved]
  - Anxiety [Not Recovered/Not Resolved]
  - Influenza [Not Recovered/Not Resolved]
  - Migraine [Not Recovered/Not Resolved]
  - Rheumatoid arthritis [Not Recovered/Not Resolved]
  - Drug ineffective [Not Recovered/Not Resolved]
  - Drug intolerance [Not Recovered/Not Resolved]
  - Gastroenteritis radiation [Not Recovered/Not Resolved]
  - Gastritis [Not Recovered/Not Resolved]
  - Hypertension [Not Recovered/Not Resolved]
  - Dry eye [Not Recovered/Not Resolved]
  - Respiratory disorder [Not Recovered/Not Resolved]
